FAERS Safety Report 5827569-4 (Version None)
Quarter: 2008Q3

REPORT INFORMATION
  Report Type: 
  Country: None (occurrence: None)
  Receive Date: 20080730
  Receipt Date: 20080704
  Transmission Date: 20090109
  Serious: No
  Sender: FDA-Public Use
  Company Number: US-BOEHRINGER INGELHEIM GMBH, GERMANY-2008-BP-10605BP

PATIENT
  Sex: Male

DRUGS (2)
  1. ZANTAC 75 [Suspect]
     Dates: start: 20080704, end: 20080704
  2. PEPTO BISMAL [Suspect]

REACTIONS (2)
  - ANXIETY [None]
  - DRY MOUTH [None]
